FAERS Safety Report 6851123-9 (Version None)
Quarter: 2010Q3

REPORT INFORMATION
  Report Type: 
  Country: None (occurrence: None)
  Receive Date: 20100716
  Receipt Date: 20071031
  Transmission Date: 20110219
  Serious: No
  Sender: FDA-Public Use
  Company Number: US-PFIZER INC-2007091518

PATIENT
  Sex: Male
  Weight: 97.727 kg

DRUGS (3)
  1. CHANTIX [Suspect]
     Indication: SMOKING CESSATION THERAPY
     Dates: start: 20071001
  2. LOVASTATIN [Concomitant]
  3. DIOVANE [Concomitant]

REACTIONS (2)
  - IRRITABILITY [None]
  - SOMNOLENCE [None]
